FAERS Safety Report 13226779 (Version 1)
Quarter: 2017Q1

REPORT INFORMATION
  Report Type: Spontaneous
  Country: US (occurrence: US)
  Receive Date: 20170213
  Receipt Date: 20170213
  Transmission Date: 20170428
  Serious: Yes (Other)
  Sender: FDA-Public Use
  Company Number: US-VALIDUS PHARMACEUTICALS LLC-US-2017VAL000189

PATIENT
  Age: 2 Year
  Sex: Male

DRUGS (3)
  1. PHENOBARBITAL. [Suspect]
     Active Substance: PHENOBARBITAL
     Indication: SEIZURE
     Dosage: UNK
     Route: 065
  2. ERGOCALCIFEROL. [Suspect]
     Active Substance: ERGOCALCIFEROL
     Indication: HYPOCALCAEMIA
     Dosage: 500 IU, QD
     Route: 065
  3. PHENYTOIN. [Suspect]
     Active Substance: PHENYTOIN
     Indication: SEIZURE
     Dosage: UNK
     Route: 065

REACTIONS (6)
  - Drug interaction [Recovered/Resolved]
  - Hypokinesia [Recovered/Resolved]
  - Osteodystrophy [Recovered/Resolved]
  - Fracture [Recovered/Resolved]
  - Hypocalcaemia [Recovered/Resolved]
  - High turnover osteopathy [Unknown]

NARRATIVE: CASE EVENT DATE: 197511
